FAERS Safety Report 25074024 (Version 1)
Quarter: 2025Q1

REPORT INFORMATION
  Report Type: Spontaneous
  Country: GB (occurrence: GB)
  Receive Date: 20250313
  Receipt Date: 20250313
  Transmission Date: 20250408
  Serious: Yes (Hospitalization, Other)
  Sender: MYLAN
  Company Number: GB-MYLANLABS-2025M1020794

PATIENT
  Sex: Female

DRUGS (4)
  1. CLOZARIL [Suspect]
     Active Substance: CLOZAPINE
     Indication: Schizophrenia
  2. CLOZARIL [Suspect]
     Active Substance: CLOZAPINE
     Dosage: 400 MILLIGRAM, PM (AT NIGHT)
  3. CLOZARIL [Suspect]
     Active Substance: CLOZAPINE
     Dosage: 300 MILLIGRAM, PM (AT NIGHT)
     Dates: start: 20250305
  4. CLOZARIL [Suspect]
     Active Substance: CLOZAPINE
     Dosage: 200 MILLIGRAM, PM (AT NIGHT)
     Dates: start: 20250307

REACTIONS (9)
  - Respiratory tract infection [Unknown]
  - Empyema [Unknown]
  - Antipsychotic drug level increased [Unknown]
  - Enzyme inhibition [Unknown]
  - Orthostatic hypertension [Unknown]
  - Miosis [Unknown]
  - Constipation [Unknown]
  - White blood cell count increased [Unknown]
  - Neutrophil count increased [Unknown]
